FAERS Safety Report 9735971 (Version 1)
Quarter: 2013Q4

REPORT INFORMATION
  Report Type: Spontaneous
  Country: US (occurrence: None)
  Receive Date: 20131205
  Receipt Date: 20131205
  Transmission Date: 20140711
  Serious: Yes (Hospitalization)
  Sender: FDA-Public Use
  Company Number: None

PATIENT
  Age: 25 Year
  Sex: Female
  Weight: 153.77 kg

DRUGS (4)
  1. NUVARING [Suspect]
     Indication: CONTRACEPTION
     Dosage: 1 RING EVERY 3 WEEKS VAGINAL
     Route: 067
  2. FLECAINDE [Concomitant]
  3. METOPROLOL TARTRATE [Concomitant]
  4. CHOLECALCIFEROL [Concomitant]

REACTIONS (1)
  - Pulmonary embolism [None]
